FAERS Safety Report 9414822 (Version 1)
Quarter: 2013Q3

REPORT INFORMATION
  Report Type: Spontaneous
  Country: US (occurrence: US)
  Receive Date: 20130723
  Receipt Date: 20130723
  Transmission Date: 20140515
  Serious: Yes (Hospitalization)
  Sender: FDA-Public Use
  Company Number: PHEH2013US015414

PATIENT
  Sex: Female

DRUGS (8)
  1. EXELON PATCH [Suspect]
     Dosage: 4.6 MG, QD
     Route: 062
  2. NAMENDA [Concomitant]
     Dosage: 40 MG, QD
  3. CELEXA [Concomitant]
     Dosage: 60 MG, QD
  4. SEROQUEL [Concomitant]
     Dosage: 50 MG, UNK
  5. SEROQUEL [Concomitant]
     Dosage: 200 MG, UNK
  6. SIMVASTATIN [Concomitant]
     Dosage: 20 MG, QD
  7. LEVOTHYROXINE [Concomitant]
  8. NUEDEXTA [Concomitant]

REACTIONS (2)
  - Infection [Unknown]
  - Drug administration error [Unknown]
